FAERS Safety Report 7301583-4 (Version None)
Quarter: 2011Q1

REPORT INFORMATION
  Report Type: 
  Country: None (occurrence: None)
  Receive Date: 20110218
  Receipt Date: 20110207
  Transmission Date: 20110831
  Serious: Yes (Other)
  Sender: FDA-Public Use
  Company Number: BE-ELI_LILLY_AND_COMPANY-BE201012006469

PATIENT
  Sex: Female
  Weight: 70 kg

DRUGS (1)
  1. CYMBALTA [Suspect]
     Indication: FATIGUE
     Dosage: UNK, DAILY (1/D)
     Route: 048
     Dates: start: 20091014, end: 20091126

REACTIONS (4)
  - RASH [None]
  - SKIN OEDEMA [None]
  - HAEMATOMA [None]
  - OFF LABEL USE [None]
